FAERS Safety Report 15260150 (Version 2)
Quarter: 2018Q3

REPORT INFORMATION
  Report Type: Spontaneous
  Country: LT (occurrence: LT)
  Receive Date: 20180809
  Receipt Date: 20180830
  Transmission Date: 20181010
  Serious: Yes (Hospitalization, Other)
  Sender: FDA-Public Use
  Company Number: LT-SA-2018SA213430

PATIENT
  Age: 70 Year
  Sex: Female

DRUGS (14)
  1. RIFAMPICIN [Suspect]
     Active Substance: RIFAMPIN
     Indication: PULMONARY TUBERCULOSIS
     Dosage: 600 MG, QD
  2. ISONIAZID. [Suspect]
     Active Substance: ISONIAZID
     Indication: PULMONARY TUBERCULOSIS
     Dosage: 300 MG, QD
  3. TACROLIMUS. [Interacting]
     Active Substance: TACROLIMUS
     Dosage: 15?20 MG
  4. TACROLIMUS. [Interacting]
     Active Substance: TACROLIMUS
     Dosage: 12 MG
  5. TACROLIMUS. [Interacting]
     Active Substance: TACROLIMUS
     Dosage: REDUCED DOSE
  6. PYRAZINAMIDE. [Suspect]
     Active Substance: PYRAZINAMIDE
     Indication: PULMONARY TUBERCULOSIS
     Dosage: 2 G, QD
  7. TACROLIMUS. [Interacting]
     Active Substance: TACROLIMUS
     Dosage: 25 MG, QD
  8. TACROLIMUS. [Interacting]
     Active Substance: TACROLIMUS
     Indication: IMMUNOSUPPRESSION
     Dosage: UNK
     Dates: start: 2016
  9. TACROLIMUS. [Interacting]
     Active Substance: TACROLIMUS
     Dosage: 10 MG, QD
  10. TACROLIMUS. [Interacting]
     Active Substance: TACROLIMUS
     Dosage: INCREASED DOSE
  11. MYCOPHENOLATE MOFETIL. [Suspect]
     Active Substance: MYCOPHENOLATE MOFETIL
     Indication: IMMUNOSUPPRESSION
     Dosage: UNK
     Dates: start: 2016
  12. ETHAMBUTOL [Suspect]
     Active Substance: ETHAMBUTOL HYDROCHLORIDE
     Indication: PULMONARY TUBERCULOSIS
     Dosage: 1.2 G, QD
  13. TACROLIMUS. [Interacting]
     Active Substance: TACROLIMUS
     Dosage: 20?15 MG
  14. PREDNISOLONE. [Suspect]
     Active Substance: PREDNISOLONE
     Indication: IMMUNOSUPPRESSION
     Dosage: UNK
     Dates: start: 2016

REACTIONS (8)
  - Pyrexia [Unknown]
  - Abdominal pain [Unknown]
  - Pulmonary tuberculosis [Unknown]
  - Hepatic enzyme increased [Unknown]
  - Transplant rejection [Unknown]
  - Dyspnoea [Unknown]
  - Drug level decreased [Recovered/Resolved]
  - Drug interaction [Recovered/Resolved]

NARRATIVE: CASE EVENT DATE: 201612
